FAERS Safety Report 6902067-5 (Version None)
Quarter: 2010Q3

REPORT INFORMATION
  Report Type: 
  Country: None (occurrence: None)
  Receive Date: 20100803
  Receipt Date: 20080421
  Transmission Date: 20110219
  Serious: No
  Sender: FDA-Public Use
  Company Number: US-PFIZER INC-2008036280

PATIENT
  Sex: Female
  Weight: 45.5 kg

DRUGS (1)
  1. LYRICA [Suspect]
     Indication: CYSTITIS INTERSTITIAL
     Dosage: EVERY DAY
     Dates: start: 20080101

REACTIONS (1)
  - WEIGHT INCREASED [None]
